FAERS Safety Report 16212664 (Version 1)
Quarter: 2019Q2

REPORT INFORMATION
  Report Type: Spontaneous
  Country: US (occurrence: US)
  Receive Date: 20190418
  Receipt Date: 20190418
  Transmission Date: 20190711
  Serious: Yes (Other)
  Sender: FDA-Public Use
  Company Number: US-ASTELLAS-2018US033634

PATIENT
  Age: 77 Year
  Sex: Female

DRUGS (1)
  1. LEXISCAN [Suspect]
     Active Substance: REGADENOSON
     Indication: PRODUCT USED FOR UNKNOWN INDICATION
     Dosage: UNK, UNKNOWN FREQ.
     Route: 065

REACTIONS (6)
  - Atrioventricular block first degree [Unknown]
  - Loss of consciousness [Recovered/Resolved]
  - Feeling hot [Unknown]
  - Tachycardia [Recovered/Resolved]
  - Nausea [Unknown]
  - Cardiac arrest [Recovered/Resolved]
